FAERS Safety Report 23902989 (Version 1)
Quarter: 2024Q2

REPORT INFORMATION
  Report Type: Other
  Country: US (occurrence: None)
  Receive Date: 20240527
  Receipt Date: 20240527
  Transmission Date: 20240716
  Serious: Yes (Other)
  Sender: FDA-Public Use
  Company Number: US-ROCHE-3510314

PATIENT
  Age: 75 Year
  Sex: Female

DRUGS (6)
  1. ACTEMRA [Suspect]
     Active Substance: TOCILIZUMAB
     Indication: Rheumatoid arthritis
     Route: 042
     Dates: start: 2017
  2. ACTEMRA [Suspect]
     Active Substance: TOCILIZUMAB
     Indication: Autoimmune disorder
     Route: 058
  3. ACTEMRA [Suspect]
     Active Substance: TOCILIZUMAB
  4. ACTEMRA [Suspect]
     Active Substance: TOCILIZUMAB
  5. ELIQUIS [Concomitant]
     Active Substance: APIXABAN
     Indication: Anticoagulant therapy
  6. SOTALOL [Concomitant]
     Active Substance: SOTALOL

REACTIONS (4)
  - Cerebrovascular accident [Recovered/Resolved]
  - Atrial fibrillation [Recovered/Resolved]
  - Fall [Unknown]
  - Nausea [Recovered/Resolved]

NARRATIVE: CASE EVENT DATE: 20220301
